FAERS Safety Report 24153463 (Version 1)
Quarter: 2024Q3

REPORT INFORMATION
  Report Type: Spontaneous
  Country: US (occurrence: None)
  Receive Date: 20240730
  Receipt Date: 20240730
  Transmission Date: 20241016
  Serious: Yes (Hospitalization)
  Sender: Public
  Company Number: None

PATIENT
  Age: 27 Year
  Sex: Female
  Weight: 73 kg

DRUGS (1)
  1. ZEPBOUND [Suspect]
     Active Substance: TIRZEPATIDE
     Indication: Weight decreased
     Dosage: OTHER FREQUENCY : ONCE WEEKLY;?
     Route: 058
     Dates: start: 20240623, end: 20240707

REACTIONS (6)
  - Nausea [None]
  - Vomiting [None]
  - Hypophagia [None]
  - Colitis [None]
  - Lithiasis [None]
  - Oesophagitis [None]

NARRATIVE: CASE EVENT DATE: 20240711
